FAERS Safety Report 14824381 (Version 1)
Quarter: 2018Q2

REPORT INFORMATION
  Report Type: Spontaneous
  Country: US (occurrence: US)
  Receive Date: 20180429
  Receipt Date: 20180429
  Transmission Date: 20180711
  Serious: No
  Sender: FDA-Public Use
  Company Number: US-ANIPHARMA-2018-US-003137

PATIENT
  Sex: Male

DRUGS (1)
  1. PROPRANOLOL HYDROCHLORIDE (NON-SPECIFIC) [Suspect]
     Active Substance: PROPRANOLOL HYDROCHLORIDE
     Dosage: UNKNOWN DOSE
     Route: 065

REACTIONS (2)
  - Insomnia [Unknown]
  - Headache [Unknown]
